FAERS Safety Report 9210707 (Version 2)
Quarter: 2013Q2

REPORT INFORMATION
  Report Type: Spontaneous
  Country: US (occurrence: US)
  Receive Date: 20130404
  Receipt Date: 20130501
  Transmission Date: 20140414
  Serious: Yes (Death)
  Sender: FDA-Public Use
  Company Number: US-GLAXOSMITHKLINE-A1018286A

PATIENT
  Age: 55 Year
  Sex: Male

DRUGS (1)
  1. VOTRIENT [Suspect]
     Indication: RENAL CANCER
     Dosage: 200MG UNKNOWN
     Route: 048
     Dates: start: 20121231, end: 20130207

REACTIONS (2)
  - Renal cancer [Fatal]
  - Drug ineffective [Unknown]
